FAERS Safety Report 19251462 (Version 1)
Quarter: 2021Q2

REPORT INFORMATION
  Report Type: Spontaneous
  Country: US (occurrence: US)
  Receive Date: 20210513
  Receipt Date: 20210513
  Transmission Date: 20210717
  Serious: Yes (Hospitalization)
  Sender: FDA-Public Use
  Company Number: US-ALEMBIC PHARMACUETICALS LIMITED-2021SCAL000230

PATIENT

DRUGS (2)
  1. LITHIUM CARBONATE. [Suspect]
     Active Substance: LITHIUM CARBONATE
     Indication: BIPOLAR I DISORDER
     Dosage: UNK
     Route: 065
  2. LITHIUM CARBONATE. [Suspect]
     Active Substance: LITHIUM CARBONATE
     Dosage: REDUCED DOSE
     Route: 065

REACTIONS (15)
  - Muscular weakness [Recovering/Resolving]
  - Tremor [Recovering/Resolving]
  - Affective disorder [Recovering/Resolving]
  - Grandiosity [Recovering/Resolving]
  - Nasal congestion [Recovering/Resolving]
  - Mania [Recovering/Resolving]
  - Confusional state [Recovering/Resolving]
  - Mental status changes [Recovering/Resolving]
  - Sexually inappropriate behaviour [Recovering/Resolving]
  - Agitation [Recovering/Resolving]
  - Cognitive disorder [Recovered/Resolved]
  - Toxicity to various agents [Recovering/Resolving]
  - Abnormal behaviour [Recovering/Resolving]
  - Tangentiality [Recovering/Resolving]
  - Salivary hypersecretion [Recovering/Resolving]
